FAERS Safety Report 4553684-1 (Version None)
Quarter: 2004Q4

REPORT INFORMATION
  Report Type: 
  Country: None (occurrence: None)
  Receive Date: 20041227
  Receipt Date: 20040803
  Transmission Date: 20050328
  Serious: Yes (Hospitalization)
  Sender: FDA-Public Use
  Company Number: US-JNJFOC-20040703978

PATIENT
  Age: 58 Year
  Sex: Female
  Weight: 135.6255 kg

DRUGS (3)
  1. REOPRO [Suspect]
     Indication: CORONARY ANGIOPLASTY
     Dosage: SEE IMAGE
     Route: 042
     Dates: start: 20040601, end: 20040601
  2. REOPRO [Suspect]
     Indication: CORONARY ANGIOPLASTY
     Dosage: SEE IMAGE
     Route: 042
     Dates: start: 20040601
  3. REOPRO [Suspect]

REACTIONS (1)
  - PLATELET COUNT DECREASED [None]
